FAERS Safety Report 6545481-2 (Version None)
Quarter: 2010Q1

REPORT INFORMATION
  Report Type: 
  Country: None (occurrence: None)
  Receive Date: 20100119
  Receipt Date: 20100112
  Transmission Date: 20100710
  Serious: Yes (Other)
  Sender: FDA-Public Use
  Company Number: 2010SP002914

PATIENT
  Age: 35 Year
  Sex: Female
  Weight: 120.2032 kg

DRUGS (5)
  1. IMPLANON [Suspect]
     Indication: CONTRACEPTION
     Dates: start: 20081104
  2. LYRICA [Concomitant]
  3. NEXIUM [Concomitant]
  4. DARVOCET [Concomitant]
  5. LOTREL [Concomitant]

REACTIONS (1)
  - BREAST CANCER FEMALE [None]
